FAERS Safety Report 17124236 (Version 1)
Quarter: 2019Q4

REPORT INFORMATION
  Report Type: Spontaneous
  Country: US (occurrence: US)
  Receive Date: 20191206
  Receipt Date: 20191206
  Transmission Date: 20200122
  Serious: Yes (Other)
  Sender: FDA-Public Use
  Company Number: US-SA-2019SA336956

PATIENT
  Sex: Female

DRUGS (1)
  1. GOLD BOND MEDICATED CRACKED SKIN FILL AND PROTECT [Suspect]
     Active Substance: PETROLATUM

REACTIONS (6)
  - Pain [Unknown]
  - Quality of life decreased [Unknown]
  - Anxiety [Unknown]
  - Mesothelioma [Unknown]
  - Occupational exposure to product [Unknown]
  - Impaired work ability [Unknown]

NARRATIVE: CASE EVENT DATE: 20190909
